FAERS Safety Report 6246265-5 (Version None)
Quarter: 2009Q2

REPORT INFORMATION
  Report Type: 
  Country: None (occurrence: None)
  Receive Date: 20090624
  Receipt Date: 20090615
  Transmission Date: 20091009
  Serious: Yes (Hospitalization)
  Sender: FDA-Public Use
  Company Number: 2009JP002032

PATIENT
  Age: 63 Year
  Sex: Male
  Weight: 60.5 kg

DRUGS (7)
  1. HARNAL(TAMSULOSIN) ORODISPERSIBLE CR STABLET, UNKNOWN [Suspect]
     Indication: BENIGN PROSTATIC HYPERPLASIA
     Dosage: 0.2MG, /D, ORAL
     Route: 048
     Dates: start: 20081201
  2. SOLIFENACIN BLINDEDC      (CODE NOT BROKEN) TABLET, UNKNOWN [Suspect]
     Indication: HYPERTONIC BLADDER
     Dosage: ORAL
     Route: 048
     Dates: start: 20090120, end: 20090202
  3. PRAVASTATIN SODIUM [Concomitant]
  4. MENTAX (BUTENAFINE HYDROCHLORIDE) [Concomitant]
  5. LOXOPROFEN (LOXOPROFEN) [Concomitant]
  6. MESADORIN S (LEVOGLUTAMIDE, SODIUM GUALENATE) [Concomitant]
  7. CEFACLOR [Concomitant]

REACTIONS (1)
  - LIMB TRAUMATIC AMPUTATION [None]
